FAERS Safety Report 24856508 (Version 8)
Quarter: 2025Q2

REPORT INFORMATION
  Report Type: Spontaneous
  Country: JP (occurrence: JP)
  Receive Date: 20250117
  Receipt Date: 20250526
  Transmission Date: 20250716
  Serious: Yes (Death, Hospitalization, Other)
  Sender: ALEXION PHARMACEUTICALS
  Company Number: JP-AstraZeneca-CH-00760160A

PATIENT
  Age: 72 Year

DRUGS (17)
  1. ULTOMIRIS [Suspect]
     Active Substance: RAVULIZUMAB-CWVZ
     Indication: Myasthenia gravis
  2. ULTOMIRIS [Suspect]
     Active Substance: RAVULIZUMAB-CWVZ
     Dosage: 3000 MILLIGRAM, Q8W
  3. ULTOMIRIS [Suspect]
     Active Substance: RAVULIZUMAB-CWVZ
  4. AMLODIPINE [Suspect]
     Active Substance: AMLODIPINE BESYLATE
     Route: 065
  5. LANSOPRAZOLE [Suspect]
     Active Substance: LANSOPRAZOLE
     Route: 065
  6. TACROLIMUS [Suspect]
     Active Substance: TACROLIMUS
     Route: 065
  7. MENQUADFI [Suspect]
     Active Substance: NEISSERIA MENINGITIDIS GROUP A CAPSULAR POLYSACCHARIDE TETANUS TOXOID CONJUGATE ANTIGEN\NEISSERIA ME
     Route: 065
  8. BONALON [Suspect]
     Active Substance: ALENDRONATE SODIUM
  9. PREDONINE [Suspect]
     Active Substance: PREDNISOLONE
     Dosage: 30 MILLIGRAM, QD
     Route: 065
  10. PREDONINE [Suspect]
     Active Substance: PREDNISOLONE
     Route: 065
  11. SULFAMETHOXAZOLE\TRIMETHOPRIM [Concomitant]
     Active Substance: SULFAMETHOXAZOLE\TRIMETHOPRIM
     Route: 065
  12. MIYA-BM [Concomitant]
     Active Substance: CLOSTRIDIUM BUTYRICUM SPORES STRAIN M-55
     Route: 065
  13. ACTONEL [Concomitant]
     Active Substance: RISEDRONATE SODIUM
     Route: 065
  14. DAYVIGO [Concomitant]
     Active Substance: LEMBOREXANT
     Route: 065
  15. METOCLOPRAMIDE [Concomitant]
     Active Substance: METOCLOPRAMIDE
     Route: 065
  16. NAFTOPIDIL [Concomitant]
     Active Substance: NAFTOPIDIL
     Route: 065
  17. VIBEGRON [Concomitant]
     Active Substance: VIBEGRON
     Route: 065

REACTIONS (8)
  - Colon cancer metastatic [Fatal]
  - Metastases to lung [Fatal]
  - Metastases to liver [Fatal]
  - Metastases to peritoneum [Fatal]
  - General physical health deterioration [Fatal]
  - Steroid diabetes [Not Recovered/Not Resolved]
  - Taste disorder [Not Recovered/Not Resolved]
  - Zinc deficiency [Not Recovered/Not Resolved]
